FAERS Safety Report 20055068 (Version 1)
Quarter: 2021Q4

REPORT INFORMATION
  Report Type: Report from Study
  Country: US (occurrence: US)
  Receive Date: 20211110
  Receipt Date: 20211110
  Transmission Date: 20220303
  Serious: Yes (Hospitalization, Other)
  Sender: FDA-Public Use
  Company Number: US-JNJFOC-20210839216

PATIENT
  Age: 67 Year
  Sex: Female
  Weight: 118.2 kg

DRUGS (10)
  1. SELEXIPAG [Suspect]
     Active Substance: SELEXIPAG
     Indication: Pulmonary arterial hypertension
     Dosage: UPTRAVI 1000 MCG ORALLY 2 TIMES DAILY
     Route: 048
     Dates: start: 20210814
  2. SELEXIPAG [Suspect]
     Active Substance: SELEXIPAG
     Dosage: TILL FRIDAY
     Route: 048
     Dates: start: 202108
  3. SELEXIPAG [Suspect]
     Active Substance: SELEXIPAG
     Route: 048
     Dates: start: 20210911
  4. SELEXIPAG [Suspect]
     Active Substance: SELEXIPAG
     Dosage: MORNING DOSE  800MCG
     Route: 048
  5. SELEXIPAG [Suspect]
     Active Substance: SELEXIPAG
     Dosage: UPTRAVI 800 MCG ORALLY 2 TIMES DAILY
     Route: 048
  6. SELEXIPAG [Suspect]
     Active Substance: SELEXIPAG
     Route: 048
  7. SELEXIPAG [Suspect]
     Active Substance: SELEXIPAG
     Dosage: 600 MCG IN AM AND 800 MCG IN EVENING
     Route: 048
  8. SELEXIPAG [Suspect]
     Active Substance: SELEXIPAG
     Route: 048
  9. MACITENTAN [Suspect]
     Active Substance: MACITENTAN
     Indication: Product used for unknown indication
     Route: 065
  10. SILDENAFIL CITRATE [Concomitant]
     Active Substance: SILDENAFIL CITRATE
     Indication: Product used for unknown indication
     Route: 065

REACTIONS (15)
  - Mass [Unknown]
  - Cardiac failure [Unknown]
  - Pain in extremity [Recovering/Resolving]
  - Headache [Not Recovered/Not Resolved]
  - Diarrhoea [Unknown]
  - Walking aid user [Unknown]
  - Dizziness [Not Recovered/Not Resolved]
  - Fall [Unknown]
  - Gait disturbance [Not Recovered/Not Resolved]
  - Lacrimation increased [Unknown]
  - Feeling abnormal [Not Recovered/Not Resolved]
  - Pain in jaw [Unknown]
  - Arthralgia [Unknown]
  - Tremor [Unknown]
  - Pain in extremity [Not Recovered/Not Resolved]

NARRATIVE: CASE EVENT DATE: 20210101
